FAERS Safety Report 5171636-8 (Version None)
Quarter: 2006Q4

REPORT INFORMATION
  Report Type: 
  Country: None (occurrence: None)
  Receive Date: 20061205
  Receipt Date: 20061109
  Transmission Date: 20070319
  Serious: Yes (Hospitalization)
  Sender: FDA-Public Use
  Company Number: US-2006-032498

PATIENT
  Age: 54 Year
  Sex: Female

DRUGS (3)
  1. BETASERON [Suspect]
     Indication: RELAPSING-REMITTING MULTIPLE SCLEROSIS
     Dosage: 8 MIU, EVERY 2D, SUBCUTANEOUS
     Route: 058
     Dates: start: 20060821
  2. PERCOCET [Concomitant]
  3. GABAPENTIN [Concomitant]

REACTIONS (6)
  - ABSCESS NECK [None]
  - CONDITION AGGRAVATED [None]
  - FALL [None]
  - HEADACHE [None]
  - MULTIPLE SCLEROSIS [None]
  - POST PROCEDURAL COMPLICATION [None]
